FAERS Safety Report 6896897-6 (Version None)
Quarter: 2010Q3

REPORT INFORMATION
  Report Type: 
  Country: None (occurrence: None)
  Receive Date: 20100802
  Receipt Date: 20070226
  Transmission Date: 20110219
  Serious: No
  Sender: FDA-Public Use
  Company Number: US-PFIZER INC-2007015782

PATIENT
  Sex: Male
  Weight: 81.6 kg

DRUGS (12)
  1. LYRICA [Suspect]
     Indication: NEURALGIA
     Dates: start: 20060801
  2. DIOVAN [Concomitant]
  3. NORVASC [Concomitant]
  4. ATENOLOL [Concomitant]
  5. ZOCOR [Concomitant]
  6. OMEPRAZOLE [Concomitant]
  7. DYRENIUM [Concomitant]
  8. ALL OTHER THERAPEUTIC PRODUCTS [Concomitant]
  9. PROSCAR [Concomitant]
  10. CYMBALTA [Concomitant]
  11. ACETYLSALICYLIC ACID SRT [Concomitant]
  12. POTASSIUM CHLORIDE [Concomitant]

REACTIONS (2)
  - OEDEMA PERIPHERAL [None]
  - WEIGHT INCREASED [None]
